FAERS Safety Report 21001299 (Version 1)
Quarter: 2022Q2

REPORT INFORMATION
  Report Type: Report from Study
  Country: US (occurrence: US)
  Receive Date: 20220624
  Receipt Date: 20220624
  Transmission Date: 20220721
  Serious: Yes (Other)
  Sender: FDA-Public Use
  Company Number: US-ABBVIE-22K-163-4442984-00

PATIENT
  Sex: Male

DRUGS (2)
  1. VENCLEXTA [Suspect]
     Active Substance: VENETOCLAX
     Indication: Neoplasm malignant
     Route: 048
  2. VENCLEXTA [Suspect]
     Active Substance: VENETOCLAX
     Indication: Colorectal cancer metastatic
     Dosage: TAKE 3 TABLETS BY MOUTH DAILY WITH FOOD AND A FULL GLASS OF WATER
     Route: 048
     Dates: end: 202206

REACTIONS (4)
  - Leukaemia [Unknown]
  - Disability [Unknown]
  - Malaise [Recovering/Resolving]
  - Fatigue [Recovering/Resolving]
